FAERS Safety Report 4886147-4 (Version None)
Quarter: 2006Q1

REPORT INFORMATION
  Report Type: 
  Country: None (occurrence: None)
  Receive Date: 20060120
  Receipt Date: 20060117
  Transmission Date: 20060701
  Serious: Yes (Other)
  Sender: FDA-Public Use
  Company Number: US-GLAXOSMITHKLINE-A0589710A

PATIENT
  Sex: Male

DRUGS (1)
  1. ADVAIR DISKUS 250/50 [Suspect]
     Indication: ASTHMA
     Route: 055

REACTIONS (4)
  - ANXIETY [None]
  - ASTHMA [None]
  - DIZZINESS [None]
  - DRUG INEFFECTIVE [None]
